FAERS Safety Report 5169852-4 (Version None)
Quarter: 2006Q4

REPORT INFORMATION
  Report Type: 
  Country: None (occurrence: None)
  Receive Date: 20061212
  Receipt Date: 20061108
  Transmission Date: 20070319
  Serious: No
  Sender: FDA-Public Use
  Company Number: US-AMGEN-US199604

PATIENT
  Sex: Female

DRUGS (10)
  1. SENSIPAR [Suspect]
     Indication: HYPERPARATHYROIDISM SECONDARY
     Dates: start: 20060905
  2. EPOGEN [Concomitant]
     Indication: DIALYSIS
  3. ZEMPLAR [Concomitant]
  4. TYLENOL [Concomitant]
  5. NEPHROCAPS [Concomitant]
  6. RENAGEL [Concomitant]
  7. ZESTRIL [Concomitant]
  8. ZOLOFT [Concomitant]
  9. LOPRESSOR [Concomitant]
  10. LUMIGAN [Concomitant]

REACTIONS (1)
  - HEPATIC ENZYME INCREASED [None]
